FAERS Safety Report 17445283 (Version 7)
Quarter: 2021Q1

REPORT INFORMATION
  Report Type: Spontaneous
  Country: US (occurrence: US)
  Receive Date: 20200221
  Receipt Date: 20210331
  Transmission Date: 20210419
  Serious: Yes (Other)
  Sender: FDA-Public Use
  Company Number: US-PFIZER INC-2020078952

PATIENT
  Age: 65 Year
  Sex: Female

DRUGS (2)
  1. XELJANZ XR [Suspect]
     Active Substance: TOFACITINIB CITRATE
     Indication: RHEUMATOID ARTHRITIS
     Dosage: 11 MG, 1X/DAY (ONCE DAILY)
     Route: 048
     Dates: start: 2019
  2. TYLENOL [Concomitant]
     Active Substance: ACETAMINOPHEN
     Dosage: UNK (DOSE UNSPECIFIED)

REACTIONS (8)
  - Condition aggravated [Recovering/Resolving]
  - Weight increased [Unknown]
  - Blood cholesterol increased [Unknown]
  - Sensitivity to weather change [Not Recovered/Not Resolved]
  - Precancerous skin lesion [Unknown]
  - Oral herpes [Unknown]
  - Nasopharyngitis [Unknown]
  - Product dose omission in error [Unknown]
